FAERS Safety Report 9386855 (Version 1)
Quarter: 2013Q3

REPORT INFORMATION
  Report Type: Spontaneous
  Country: US (occurrence: US)
  Receive Date: 20130708
  Receipt Date: 20130708
  Transmission Date: 20140515
  Serious: No
  Sender: FDA-Public Use
  Company Number: US-PFIZER INC-2013198548

PATIENT
  Age: 55 Year
  Sex: Female
  Weight: 75.74 kg

DRUGS (8)
  1. NEURONTIN [Suspect]
     Indication: VASCULAR PAIN
     Dosage: 300 MG, 3X/DAY
     Route: 048
     Dates: start: 201202, end: 201306
  2. MOBIC [Suspect]
     Indication: VASCULAR PAIN
     Dosage: 7.5 MG, 2X/DAY
     Dates: start: 201202, end: 201306
  3. METFORMIN [Concomitant]
     Dosage: UNK
  4. FLEXERIL [Concomitant]
     Indication: MUSCLE SPASMS
     Dosage: UNK
  5. LISINOPRIL [Concomitant]
     Dosage: UNK
  6. NORVASC [Concomitant]
     Dosage: UNK
  7. DESVENLAFAXINE [Concomitant]
     Dosage: UNK
  8. PRILOSEC [Concomitant]
     Dosage: UNK

REACTIONS (3)
  - Off label use [Unknown]
  - Drug ineffective for unapproved indication [Unknown]
  - Drug intolerance [Unknown]
